FAERS Safety Report 25417746 (Version 1)
Quarter: 2025Q2

REPORT INFORMATION
  Report Type: Spontaneous
  Country: US (occurrence: US)
  Receive Date: 20250610
  Receipt Date: 20250610
  Transmission Date: 20250717
  Serious: No
  Sender: Methapharma
  Company Number: US-CHEMISCHE FABRIK KREUSSLER-ae002US25

PATIENT
  Age: 40 Year
  Sex: Female

DRUGS (1)
  1. ASCLERA [Suspect]
     Active Substance: POLIDOCANOL
     Indication: Reticular veins
     Dates: start: 20221114, end: 20221219

REACTIONS (2)
  - Embolia cutis medicamentosa [Recovered/Resolved]
  - Skin hyperpigmentation [Recovered/Resolved]

NARRATIVE: CASE EVENT DATE: 20221219
